FAERS Safety Report 15737240 (Version 1)
Quarter: 2018Q4

REPORT INFORMATION
  Report Type: Spontaneous
  Country: US (occurrence: US)
  Receive Date: 20181218
  Receipt Date: 20181218
  Transmission Date: 20190205
  Serious: Yes (Hospitalization, Other)
  Sender: FDA-Public Use
  Company Number: US-OTSUKA-2018_029165

PATIENT
  Sex: Male

DRUGS (5)
  1. ABILIFY [Suspect]
     Active Substance: ARIPIPRAZOLE
     Indication: SCHIZOAFFECTIVE DISORDER
  2. ABILIFY [Suspect]
     Active Substance: ARIPIPRAZOLE
     Indication: AFFECTIVE DISORDER
     Dosage: UNK
     Route: 065
     Dates: start: 2008, end: 2016
  3. ABILIFY [Suspect]
     Active Substance: ARIPIPRAZOLE
     Indication: MAJOR DEPRESSION
  4. ARIPIPRAZOLE. [Concomitant]
     Active Substance: ARIPIPRAZOLE
     Indication: PRODUCT USED FOR UNKNOWN INDICATION
     Dosage: UNK
     Route: 065
  5. ABILIFY [Suspect]
     Active Substance: ARIPIPRAZOLE
     Indication: ANXIETY

REACTIONS (14)
  - Compulsive sexual behaviour [Unknown]
  - Economic problem [Unknown]
  - Suicidal ideation [Unknown]
  - Shoplifting [Unknown]
  - Gambling disorder [Unknown]
  - Homeless [Unknown]
  - Sexual dysfunction [Unknown]
  - Suicide attempt [Unknown]
  - Theft [Unknown]
  - Eating disorder [Unknown]
  - Obsessive-compulsive disorder [Unknown]
  - Compulsive hoarding [Unknown]
  - Product use in unapproved indication [Unknown]
  - Mental disorder [Unknown]
